FAERS Safety Report 8028732-7 (Version None)
Quarter: 2012Q1

REPORT INFORMATION
  Report Type: 
  Country: None (occurrence: None)
  Receive Date: 20120106
  Receipt Date: 20120103
  Transmission Date: 20120608
  Serious: Yes (Hospitalization, Disabling, Other)
  Sender: FDA-Public Use
  Company Number: US-MERCK-1111USA02679

PATIENT
  Age: 50 Year
  Sex: Female
  Weight: 87 kg

DRUGS (2)
  1. JANUMET [Suspect]
     Route: 048
  2. JANUVIA [Suspect]
     Route: 048

REACTIONS (2)
  - UTERINE CANCER [None]
  - ENDOMETRIAL CANCER [None]
